FAERS Safety Report 7081790-9 (Version None)
Quarter: 2010Q4

REPORT INFORMATION
  Report Type: 
  Country: None (occurrence: None)
  Receive Date: 20101103
  Receipt Date: 20101027
  Transmission Date: 20110411
  Serious: Yes (Death, Hospitalization)
  Sender: FDA-Public Use
  Company Number: US-CELGENEUS-163-21880-10100888

PATIENT
  Sex: Female

DRUGS (4)
  1. REVLIMID [Suspect]
     Indication: MULTIPLE MYELOMA
     Route: 048
     Dates: start: 20090601
  2. REVLIMID [Suspect]
     Route: 048
     Dates: start: 20091001
  3. REVLIMID [Suspect]
     Route: 048
     Dates: start: 20100801
  4. REVLIMID [Suspect]
     Route: 048
     Dates: start: 20100928

REACTIONS (2)
  - DEATH [None]
  - RENAL FAILURE ACUTE [None]
